FAERS Safety Report 6840166-7 (Version None)
Quarter: 2010Q3

REPORT INFORMATION
  Report Type: 
  Country: None (occurrence: None)
  Receive Date: 20100714
  Receipt Date: 20100705
  Transmission Date: 20110219
  Serious: Yes (Other)
  Sender: FDA-Public Use
  Company Number: BR-BAYER-201016447LA

PATIENT
  Age: 70 Year
  Sex: Male
  Weight: 46 kg

DRUGS (2)
  1. NEXAVAR [Suspect]
     Indication: HEPATIC NEOPLASM MALIGNANT
     Dosage: 1 TABLET / 2 X DAY
     Route: 048
     Dates: end: 20100601
  2. NEXAVAR [Suspect]
     Dosage: 2 TABLETS / 2 X DAY
     Route: 048
     Dates: start: 20100202

REACTIONS (5)
  - ALOPECIA [None]
  - DIARRHOEA [None]
  - OESOPHAGEAL PAIN [None]
  - VOMITING [None]
  - WEIGHT DECREASED [None]
